FAERS Safety Report 7677072-4 (Version None)
Quarter: 2011Q3

REPORT INFORMATION
  Report Type: 
  Country: None (occurrence: None)
  Receive Date: 20110811
  Receipt Date: 20110803
  Transmission Date: 20111222
  Serious: Yes (Hospitalization)
  Sender: FDA-Public Use
  Company Number: AT-ROCHE-795057

PATIENT
  Sex: Male
  Weight: 68 kg

DRUGS (4)
  1. PEGINTERFERON ALFA-2A [Suspect]
     Indication: HEPATITIS C
     Route: 058
     Dates: start: 20110411
  2. BLINDED TMC435 [Suspect]
     Indication: HEPATITIS C
     Route: 048
     Dates: start: 20110411, end: 20110523
  3. RIBAVIRIN [Suspect]
     Route: 048
     Dates: start: 20110620
  4. RIBAVIRIN [Suspect]
     Indication: HEPATITIS C
     Route: 048
     Dates: start: 20110411, end: 20110619

REACTIONS (2)
  - LOSS OF CONSCIOUSNESS [None]
  - MUSCLE SPASMS [None]
